FAERS Safety Report 8311171-9 (Version None)
Quarter: 2012Q2

REPORT INFORMATION
  Report Type: 
  Country: None (occurrence: None)
  Receive Date: 20120423
  Receipt Date: 20120411
  Transmission Date: 20120825
  Serious: Yes (Other)
  Sender: FDA-Public Use
  Company Number: DSA_56169_2012

PATIENT
  Age: 67 Year
  Sex: Female

DRUGS (2)
  1. METRONIDAZOLE [Suspect]
     Indication: PERIODONTITIS
     Dosage: (DF)
     Dates: start: 20120319, end: 20120322
  2. RAMIPRIL [Concomitant]

REACTIONS (1)
  - DRUG HYPERSENSITIVITY [None]
